FAERS Safety Report 7168949-7 (Version None)
Quarter: 2010Q4

REPORT INFORMATION
  Report Type: 
  Country: None (occurrence: None)
  Receive Date: 20101216
  Receipt Date: 20101207
  Transmission Date: 20110411
  Serious: Yes (Other)
  Sender: FDA-Public Use
  Company Number: US-MYLANLABS-2010S1022358

PATIENT
  Sex: Female

DRUGS (2)
  1. AMNESTEEM [Suspect]
     Indication: ACNE
  2. SOTRET [Suspect]
     Indication: ACNE

REACTIONS (2)
  - INFLAMMATORY BOWEL DISEASE [None]
  - INTESTINAL RESECTION [None]
